FAERS Safety Report 15068167 (Version 5)
Quarter: 2019Q3

REPORT INFORMATION
  Report Type: Report from Study
  Country: US (occurrence: US)
  Receive Date: 20180626
  Receipt Date: 20190910
  Transmission Date: 20191004
  Serious: Yes (Other)
  Sender: FDA-Public Use
  Company Number: US-MALLINCKRODT-T201702976

PATIENT
  Age: 48 Year
  Sex: Male

DRUGS (7)
  1. REPOSITORY CORTICOTROPIN INJECTION [Suspect]
     Active Substance: CORTICOTROPIN
     Dosage: 80 UNITS/1 ML, 2 TIMES PER WEEK TUESDAY/FRIDAY
     Route: 058
     Dates: end: 201708
  2. REPOSITORY CORTICOTROPIN INJECTION [Suspect]
     Active Substance: CORTICOTROPIN
     Dosage: 80 UNITS/1 ML, 2 TIMES PER WEEK TUESDAY/FRIDAY
     Route: 058
  3. PREDNISONE. [Suspect]
     Active Substance: PREDNISONE
     Indication: PRODUCT USED FOR UNKNOWN INDICATION
     Dosage: UNK
     Route: 048
     Dates: start: 2001, end: 2019
  4. PREDNISONE. [Suspect]
     Active Substance: PREDNISONE
     Dosage: UNK, WEANED OFF
     Route: 048
     Dates: start: 2019, end: 2019
  5. REPOSITORY CORTICOTROPIN INJECTION [Suspect]
     Active Substance: CORTICOTROPIN
     Dosage: 80 UNITS/1 ML, 2 TIMES PER WEEK TUESDAY/FRIDAY
     Route: 058
  6. HUMIRA [Concomitant]
     Active Substance: ADALIMUMAB
     Indication: PRODUCT USED FOR UNKNOWN INDICATION
     Dosage: UNK
     Route: 065
  7. REPOSITORY CORTICOTROPIN INJECTION [Suspect]
     Active Substance: CORTICOTROPIN
     Indication: SARCOIDOSIS
     Dosage: 80 UNITS/1 ML, 2 TIMES PER WEEK MONDAY/FRIDAY
     Route: 058
     Dates: start: 20150101

REACTIONS (9)
  - Hernia [Recovering/Resolving]
  - Hernia repair [Recovering/Resolving]
  - Cardiac disorder [Not Recovered/Not Resolved]
  - Pain [Unknown]
  - Muscle discomfort [Not Recovered/Not Resolved]
  - Intestinal perforation [Recovering/Resolving]
  - Arthropathy [Not Recovered/Not Resolved]
  - Infection [Unknown]
  - Gastrointestinal surgery [Recovering/Resolving]

NARRATIVE: CASE EVENT DATE: 20170801
